FAERS Safety Report 19717461 (Version 1)
Quarter: 2021Q3

REPORT INFORMATION
  Report Type: Spontaneous
  Country: US (occurrence: US)
  Receive Date: 20210819
  Receipt Date: 20210819
  Transmission Date: 20211014
  Serious: Yes (Hospitalization)
  Sender: FDA-Public Use
  Company Number: US-GYP-000364

PATIENT
  Age: 53 Year

DRUGS (1)
  1. PREDNISONE. [Suspect]
     Active Substance: PREDNISONE
     Indication: UVEITIS
     Route: 048

REACTIONS (3)
  - Product use in unapproved indication [Unknown]
  - Duodenitis [Recovered/Resolved]
  - Strongyloidiasis [Recovered/Resolved]
